FAERS Safety Report 17051766 (Version 3)
Quarter: 2019Q4

REPORT INFORMATION
  Report Type: Report from Study
  Country: US (occurrence: US)
  Receive Date: 20191120
  Receipt Date: 20191210
  Transmission Date: 20200122
  Serious: No
  Sender: FDA-Public Use
  Company Number: NVSC2019US041908

PATIENT
  Age: 68 Year
  Sex: Female

DRUGS (2)
  1. ENTRESTO [Suspect]
     Active Substance: SACUBITRIL\VALSARTAN
     Indication: CARDIAC FAILURE
     Dosage: 1 DF, (24 MG SACUBITRIL, 26 MG VALSARTAN), BID
     Route: 048
     Dates: start: 2016
  2. ENTRESTO [Suspect]
     Active Substance: SACUBITRIL\VALSARTAN
     Dosage: 1 DF, (24 MG SACUBITRIL, 26 MG VALSARTAN), BID
     Route: 048
     Dates: start: 20191101

REACTIONS (4)
  - Bronchitis [Recovering/Resolving]
  - Cough [Unknown]
  - Hypotension [Recovering/Resolving]
  - Nasal congestion [Recovering/Resolving]

NARRATIVE: CASE EVENT DATE: 20191115
